FAERS Safety Report 5594546-0 (Version None)
Quarter: 2008Q1

REPORT INFORMATION
  Report Type: 
  Country: None (occurrence: None)
  Receive Date: 20080117
  Receipt Date: 20080114
  Transmission Date: 20080703
  Serious: Yes (Life-Threatening, Other)
  Sender: FDA-Public Use
  Company Number: US-ASTRAZENECA-2007UW23671

PATIENT
  Age: 78 Day
  Sex: Male
  Weight: 3.7 kg

DRUGS (6)
  1. PULMICORT RESPULES [Suspect]
     Indication: BRONCHOPULMONARY DYSPLASIA
     Route: 055
     Dates: start: 20070814, end: 20070927
  2. PULMICORT RESPULES [Suspect]
     Route: 055
     Dates: start: 20070927, end: 20071015
  3. RANITIDINE [Concomitant]
     Dates: start: 20070923
  4. METOCLOPRAMIDE [Concomitant]
     Dates: start: 20070925
  5. ANTIBIOTICS [Concomitant]
  6. PAIN MEDICATION [Concomitant]

REACTIONS (2)
  - MACROGLOSSIA [None]
  - SWOLLEN TONGUE [None]
